FAERS Safety Report 12253875 (Version 1)
Quarter: 2016Q2

REPORT INFORMATION
  Report Type: Report from Study
  Country: US (occurrence: US)
  Receive Date: 20160411
  Receipt Date: 20160411
  Transmission Date: 20160815
  Serious: Yes (Hospitalization)
  Sender: FDA-Public Use
  Company Number: US-JNJFOC-20160408647

PATIENT
  Sex: Male

DRUGS (8)
  1. BICALUTAMIDE. [Concomitant]
     Active Substance: BICALUTAMIDE
  2. FISH OIL [Concomitant]
     Active Substance: FISH OIL
  3. CENTRUM [Concomitant]
     Active Substance: VITAMINS
  4. IMBRUVICA [Suspect]
     Active Substance: IBRUTINIB
     Indication: LYMPHOCYTIC LEUKAEMIA
     Route: 048
     Dates: start: 201603
  5. IMBRUVICA [Suspect]
     Active Substance: IBRUTINIB
     Indication: LYMPHOCYTIC LEUKAEMIA
     Route: 048
     Dates: start: 20160404
  6. LUPRON [Concomitant]
     Active Substance: LEUPROLIDE ACETATE
  7. CURCUMA LONGA RHIZOME [Concomitant]
  8. VITAMINA B12 [Concomitant]

REACTIONS (5)
  - Heart rate irregular [Unknown]
  - Laboratory test abnormal [Unknown]
  - Incorrect dose administered [Recovered/Resolved]
  - Off label use [Unknown]
  - Pulmonary congestion [Recovered/Resolved]

NARRATIVE: CASE EVENT DATE: 2016
